FAERS Safety Report 5886450-5 (Version None)
Quarter: 2008Q3

REPORT INFORMATION
  Report Type: 
  Country: None (occurrence: None)
  Receive Date: 20080917
  Receipt Date: 20080829
  Transmission Date: 20090109
  Serious: No
  Sender: FDA-Public Use
  Company Number: US-JNJFOC-20080900655

PATIENT
  Sex: Female
  Weight: 72.12 kg

DRUGS (2)
  1. INVEGA [Suspect]
     Indication: SCHIZOPHRENIA
     Dosage: ONE TABLET, STRENGTH UNSPECIFIED
  2. DEPAKOTE [Concomitant]
     Indication: SCHIZOPHRENIA

REACTIONS (2)
  - AMENORRHOEA [None]
  - GALACTORRHOEA [None]
